FAERS Safety Report 21604886 (Version 2)
Quarter: 2023Q1

REPORT INFORMATION
  Report Type: Spontaneous
  Country: JP (occurrence: JP)
  Receive Date: 20221116
  Receipt Date: 20230322
  Transmission Date: 20230418
  Serious: Yes (Other)
  Sender: FDA-Public Use
  Company Number: JP-DSPHARMA-2022SMP012812

PATIENT
  Age: 58 Year
  Sex: Female

DRUGS (2)
  1. LATUDA [Suspect]
     Active Substance: LURASIDONE HYDROCHLORIDE
     Indication: Product used for unknown indication
     Dosage: UNK
     Route: 048
  2. SEX HORMONES AND MODULATORS OF THE GENITAL SYSTEM [Concomitant]
     Indication: Hot flush
     Dosage: UNK
     Route: 048

REACTIONS (1)
  - Genital haemorrhage [Unknown]
